FAERS Safety Report 5732879-5 (Version None)
Quarter: 2008Q2

REPORT INFORMATION
  Report Type: 
  Country: None (occurrence: None)
  Receive Date: 20080509
  Receipt Date: 20080130
  Transmission Date: 20081010
  Serious: No
  Sender: FDA-Public Use
  Company Number: A0706375A

PATIENT
  Age: 79 Year
  Sex: Female

DRUGS (7)
  1. COREG CR [Suspect]
     Dosage: 20MG PER DAY
     Route: 048
     Dates: start: 20070601
  2. SYNTHROID [Concomitant]
  3. LANOXIN [Concomitant]
  4. XALATAN [Concomitant]
  5. HYDROXYUREA [Concomitant]
  6. ASPIRIN [Concomitant]
  7. CORICIDIN [Concomitant]

REACTIONS (9)
  - ANGER [None]
  - ARTHRALGIA [None]
  - DECREASED ACTIVITY [None]
  - DRUG INTERACTION [None]
  - FATIGUE [None]
  - HEADACHE [None]
  - HEART RATE DECREASED [None]
  - HEART RATE IRREGULAR [None]
  - IRRITABILITY [None]
